FAERS Safety Report 4603962-2 (Version None)
Quarter: 2005Q1

REPORT INFORMATION
  Report Type: 
  Country: None (occurrence: None)
  Receive Date: 20050310
  Receipt Date: 20050302
  Transmission Date: 20050727
  Serious: Yes (Hospitalization)
  Sender: FDA-Public Use
  Company Number: FR-ROCHE-397276

PATIENT
  Age: 30 Year
  Sex: Male

DRUGS (1)
  1. LARIAM [Suspect]
     Route: 048
     Dates: start: 20020110

REACTIONS (1)
  - FURUNCLE [None]
